FAERS Safety Report 6059809-3 (Version None)
Quarter: 2009Q1

REPORT INFORMATION
  Report Type: 
  Country: None (occurrence: None)
  Receive Date: 20090130
  Receipt Date: 20090126
  Transmission Date: 20090719
  Serious: Yes (Death, Hospitalization, Disabling)
  Sender: FDA-Public Use
  Company Number: US-CELGENEUS-163-21880-08051712

PATIENT
  Sex: Male

DRUGS (34)
  1. REVLIMID [Suspect]
     Indication: MULTIPLE MYELOMA
     Route: 048
     Dates: start: 20080101, end: 20080325
  2. DEXAMETHASONE [Concomitant]
     Indication: DRUG USE FOR UNKNOWN INDICATION
     Route: 065
  3. LYRICA [Concomitant]
     Indication: DRUG USE FOR UNKNOWN INDICATION
     Route: 065
  4. LYRICA [Concomitant]
     Route: 065
  5. FLOMAX [Concomitant]
     Indication: DRUG USE FOR UNKNOWN INDICATION
     Route: 065
  6. FERROUS SULFATE TAB [Concomitant]
     Indication: DRUG USE FOR UNKNOWN INDICATION
     Route: 065
  7. PRILOSEC [Concomitant]
     Indication: DRUG USE FOR UNKNOWN INDICATION
     Route: 065
  8. XALATAN [Concomitant]
     Indication: DRUG USE FOR UNKNOWN INDICATION
  9. AMBIEN CR [Concomitant]
     Indication: DRUG USE FOR UNKNOWN INDICATION
     Route: 065
  10. LORATADINE [Concomitant]
     Indication: DRUG USE FOR UNKNOWN INDICATION
     Route: 065
  11. ZOCOR [Concomitant]
     Indication: DRUG USE FOR UNKNOWN INDICATION
     Route: 065
  12. ATENOLOL [Concomitant]
     Indication: DRUG USE FOR UNKNOWN INDICATION
     Route: 065
  13. VICODIN [Concomitant]
     Indication: DRUG USE FOR UNKNOWN INDICATION
     Dosage: 5-500MG
     Route: 065
  14. VITAMIN B-12 [Concomitant]
     Indication: DRUG USE FOR UNKNOWN INDICATION
     Route: 065
  15. ALLOPURINOL [Concomitant]
     Indication: DRUG USE FOR UNKNOWN INDICATION
     Route: 065
  16. ACTIQ [Concomitant]
     Indication: DRUG USE FOR UNKNOWN INDICATION
     Route: 065
  17. FINASTERIDE [Concomitant]
     Indication: DRUG USE FOR UNKNOWN INDICATION
     Route: 065
  18. PROCRIT [Concomitant]
     Route: 065
     Dates: start: 20040201
  19. PROCRIT [Concomitant]
  20. SIMVASTATIN [Concomitant]
     Indication: DRUG USE FOR UNKNOWN INDICATION
     Route: 065
  21. HYDROCODONE [Concomitant]
     Indication: DRUG USE FOR UNKNOWN INDICATION
     Dosage: 5-500
     Route: 065
  22. AREDIA [Concomitant]
     Indication: DRUG USE FOR UNKNOWN INDICATION
     Route: 065
  23. ZOMETA [Concomitant]
     Indication: DRUG USE FOR UNKNOWN INDICATION
     Route: 065
  24. CALCIUM +D [Concomitant]
     Indication: DRUG USE FOR UNKNOWN INDICATION
     Route: 048
  25. NORVASC [Concomitant]
     Indication: DRUG USE FOR UNKNOWN INDICATION
     Route: 065
  26. PROSCAR [Concomitant]
     Indication: DRUG USE FOR UNKNOWN INDICATION
     Route: 065
  27. CLARITIN [Concomitant]
     Indication: DRUG USE FOR UNKNOWN INDICATION
     Route: 065
  28. ECONAZOLE NITRATE [Concomitant]
     Indication: DRUG USE FOR UNKNOWN INDICATION
     Route: 061
  29. FENTANYL-75 [Concomitant]
     Indication: DRUG USE FOR UNKNOWN INDICATION
     Dosage: 50MCG/HR
     Route: 062
  30. FENTANYL-75 [Concomitant]
     Dosage: 25MCG/HR
     Route: 062
  31. MEGACE ES [Concomitant]
     Indication: DRUG USE FOR UNKNOWN INDICATION
     Dosage: 625MG/5ML
     Route: 048
  32. PROCHLORPERAZINE MALEATE [Concomitant]
     Indication: DRUG USE FOR UNKNOWN INDICATION
     Route: 065
  33. LEVAQUIN [Concomitant]
     Indication: DRUG USE FOR UNKNOWN INDICATION
     Route: 065
  34. ARANESP [Concomitant]
     Indication: DRUG USE FOR UNKNOWN INDICATION
     Route: 050

REACTIONS (8)
  - ASTHENIA [None]
  - DEHYDRATION [None]
  - DIARRHOEA [None]
  - FATIGUE [None]
  - MULTIPLE MYELOMA [None]
  - NAUSEA [None]
  - PYREXIA [None]
  - VOMITING [None]
